FAERS Safety Report 6844455-1 (Version None)
Quarter: 2010Q2

REPORT INFORMATION
  Report Type: 
  Country: None (occurrence: None)
  Receive Date: 20100629
  Receipt Date: 20100402
  Transmission Date: 20101027
  Serious: Yes (Life-Threatening, Other)
  Sender: FDA-Public Use
  Company Number: US-WYE-H14396010

PATIENT
  Age: 48 Year
  Sex: Female
  Weight: 50.85 kg

DRUGS (8)
  1. PRISTIQ [Suspect]
  2. AMITRIPTYLINE HYDROCHLORIDE [Suspect]
     Dosage: 10 MG 1X PER 1 DAY
  3. KLONOPIN [Suspect]
     Dosage: 4 MG 1X PER 1 DAY
  4. OXYCODONE HCL [Suspect]
     Indication: ABDOMINAL PAIN UPPER
  5. OXYCONTIN [Suspect]
  6. RYZOLT [Suspect]
  7. TRAMADOL HCL [Suspect]
  8. XANAX [Suspect]
     Dosage: 4 MG 1X PER 1 DAY

REACTIONS (1)
  - CONVULSION [None]
